FAERS Safety Report 7620760-6 (Version None)
Quarter: 2011Q3

REPORT INFORMATION
  Report Type: 
  Country: None (occurrence: None)
  Receive Date: 20110719
  Receipt Date: 20110707
  Transmission Date: 20111222
  Serious: Yes (Hospitalization, Other)
  Sender: FDA-Public Use
  Company Number: PHHY2011FR61529

PATIENT
  Age: 8 Year
  Sex: Male

DRUGS (5)
  1. VALPROAT [Suspect]
     Indication: COMPLEX PARTIAL SEIZURES
  2. CARBAMAZEPINE [Suspect]
     Indication: COMPLEX PARTIAL SEIZURES
  3. TOPIRAMATE [Suspect]
  4. MIDAZOLAM HCL [Concomitant]
     Indication: COMPLEX PARTIAL SEIZURES
  5. LEVETIRACETAM [Suspect]
     Indication: COMPLEX PARTIAL SEIZURES

REACTIONS (5)
  - TOXICITY TO VARIOUS AGENTS [None]
  - COMA [None]
  - CSF LYMPHOCYTE COUNT ABNORMAL [None]
  - ENCEPHALITIS [None]
  - DRUG INEFFECTIVE [None]
